FAERS Safety Report 23502448 (Version 1)
Quarter: 2024Q1

REPORT INFORMATION
  Report Type: Spontaneous
  Country: US (occurrence: US)
  Receive Date: 20240208
  Receipt Date: 20240208
  Transmission Date: 20240410
  Serious: No
  Sender: FDA-Public Use
  Company Number: US-INTRA-CELLULAR THERAPIES, INC.-2022ICT01814

PATIENT
  Sex: Male
  Weight: 104.31 kg

DRUGS (7)
  1. CAPLYTA [Suspect]
     Active Substance: LUMATEPERONE
     Indication: Bipolar disorder
     Dosage: 42 MG, 1X/DAY AT 10:00 PM
     Route: 048
     Dates: start: 2022, end: 2022
  2. CAPLYTA [Suspect]
     Active Substance: LUMATEPERONE
     Dosage: 42 MG, 1X/DAY IN THE EARLY MORNING, AT 7:00 AM
     Route: 048
     Dates: start: 2022, end: 2022
  3. CAPLYTA [Suspect]
     Active Substance: LUMATEPERONE
     Dosage: 42 MG, 1X/DAY AT 2:00 AM
     Route: 048
     Dates: start: 2022
  4. AMLODIPINE [Concomitant]
     Active Substance: AMLODIPINE BESYLATE
  5. LOSARTAN [Concomitant]
     Active Substance: LOSARTAN
  6. IBUPROFEN [Concomitant]
     Active Substance: IBUPROFEN
  7. ALEVE [Concomitant]
     Active Substance: NAPROXEN SODIUM

REACTIONS (16)
  - Withdrawal syndrome [Not Recovered/Not Resolved]
  - Therapeutic product effect incomplete [Not Recovered/Not Resolved]
  - Thirst [Not Recovered/Not Resolved]
  - Feeling abnormal [Not Recovered/Not Resolved]
  - Performance status decreased [Not Recovered/Not Resolved]
  - Hangover [Not Recovered/Not Resolved]
  - Sleep deficit [Not Recovered/Not Resolved]
  - Poor quality sleep [Not Recovered/Not Resolved]
  - Insomnia [Not Recovered/Not Resolved]
  - Sleep disorder [Not Recovered/Not Resolved]
  - Hypermetabolism [Not Recovered/Not Resolved]
  - Disturbance in attention [Not Recovered/Not Resolved]
  - Fatigue [Not Recovered/Not Resolved]
  - Gait disturbance [Not Recovered/Not Resolved]
  - Dizziness [Not Recovered/Not Resolved]
  - Headache [Not Recovered/Not Resolved]

NARRATIVE: CASE EVENT DATE: 20220101
